FAERS Safety Report 9659793 (Version 6)
Quarter: 2014Q1

REPORT INFORMATION
  Report Type: Spontaneous
  Country: US (occurrence: US)
  Receive Date: 20131031
  Receipt Date: 20140303
  Transmission Date: 20141002
  Serious: Yes (Other)
  Sender: FDA-Public Use
  Company Number: US-PFIZER INC-2013309099

PATIENT
  Age: 68 Year
  Sex: Male
  Weight: 68.03 kg

DRUGS (2)
  1. SUTENT [Suspect]
     Indication: SARCOMA
     Dosage: 37.5 MG, 1X/DAY CONTINUOUSLY
     Route: 048
     Dates: start: 20131017
  2. SUTENT [Suspect]
     Indication: GASTROINTESTINAL STROMAL TUMOUR

REACTIONS (12)
  - Cardiac disorder [Unknown]
  - Chest discomfort [Unknown]
  - Renal disorder [Unknown]
  - Hangover [Unknown]
  - Headache [Unknown]
  - Anaemia [Unknown]
  - Bradyphrenia [Unknown]
  - Frequent bowel movements [Unknown]
  - Laboratory test abnormal [Unknown]
  - Off label use [Unknown]
  - Disease progression [Unknown]
  - Gastrointestinal stromal tumour [Unknown]
